FAERS Safety Report 4493483-2 (Version None)
Quarter: 2004Q4

REPORT INFORMATION
  Report Type: 
  Country: None (occurrence: None)
  Receive Date: 20041105
  Receipt Date: 20041020
  Transmission Date: 20050328
  Serious: Yes (Other)
  Sender: FDA-Public Use
  Company Number: US-JNJFOC-20041006389

PATIENT
  Sex: Female

DRUGS (9)
  1. REMICADE [Suspect]
     Indication: CROHN'S DISEASE
     Route: 042
  2. EPOGEN [Concomitant]
     Route: 058
  3. PREDNISONE [Concomitant]
  4. MORPHINE [Concomitant]
  5. DEMEROL [Concomitant]
  6. IMATREX [Concomitant]
  7. LEXAPRO [Concomitant]
  8. COPPER T [Concomitant]
     Indication: CONTRACEPTION
  9. PUVA [Concomitant]

REACTIONS (8)
  - ACQUIRED HAEMOPHILIA [None]
  - BLINDNESS [None]
  - CARDIAC FAILURE CONGESTIVE [None]
  - DEMYELINATION [None]
  - HISTOPLASMOSIS [None]
  - LYMPHOMA [None]
  - MYCOSIS FUNGOIDES [None]
  - SYSTEMIC LUPUS ERYTHEMATOSUS [None]
